FAERS Safety Report 6439373-7 (Version None)
Quarter: 2009Q4

REPORT INFORMATION
  Report Type: 
  Country: None (occurrence: None)
  Receive Date: 20091111
  Receipt Date: 20091111
  Transmission Date: 20100525
  Serious: Yes (Life-Threatening, Hospitalization, Disabling, Other)
  Sender: FDA-Public Use
  Company Number: None

PATIENT
  Age: 45 Year
  Sex: Female
  Weight: 68.0396 kg

DRUGS (1)
  1. YAZ [Suspect]
     Indication: MENSTRUAL DISORDER
     Dosage: 1 PILL PER DAY PO
     Route: 048
     Dates: start: 20090601, end: 20090901

REACTIONS (4)
  - CEREBROVASCULAR ACCIDENT [None]
  - PARALYSIS [None]
  - PRODUCT QUALITY ISSUE [None]
  - THROMBOSIS [None]
